FAERS Safety Report 19077940 (Version 1)
Quarter: 2021Q1

REPORT INFORMATION
  Report Type: Report from Study
  Country: GB (occurrence: GB)
  Receive Date: 20210331
  Receipt Date: 20210331
  Transmission Date: 20210420
  Serious: Yes (Hospitalization)
  Sender: FDA-Public Use
  Company Number: GB-ACCORD-220942

PATIENT
  Age: 13 Year
  Sex: Female
  Weight: 25.6 kg

DRUGS (3)
  1. ETOPOSIDE. [Suspect]
     Active Substance: ETOPOSIDE
     Indication: OSTEOSARCOMA
     Dosage: 94 MILLIGRAM, QD, ON DAY 1?3 OF EVERY 21 DAY CYCLE
     Route: 042
     Dates: start: 20201217
  2. IFOSFAMIDE. [Suspect]
     Active Substance: IFOSFAMIDE
     Indication: OSTEOSARCOMA
     Dosage: 2800 MILLIGRAM, QD
     Route: 042
     Dates: start: 20201217
  3. CYCLIZINE [Concomitant]
     Active Substance: CYCLIZINE
     Indication: PROPHYLAXIS OF NAUSEA AND VOMITING
     Dosage: 25 MILLIGRAM, Q8H
     Dates: start: 20201217

REACTIONS (7)
  - Headache [Unknown]
  - Chills [Unknown]
  - Off label use [Unknown]
  - Phantom limb syndrome [Unknown]
  - Fatigue [Unknown]
  - Pyrexia [Recovered/Resolved]
  - Heart rate increased [Unknown]

NARRATIVE: CASE EVENT DATE: 20210104
